FAERS Safety Report 7551121-6 (Version None)
Quarter: 2011Q2

REPORT INFORMATION
  Report Type: 
  Country: None (occurrence: None)
  Receive Date: 20110616
  Receipt Date: 20110606
  Transmission Date: 20111010
  Serious: Yes (Other)
  Sender: FDA-Public Use
  Company Number: GB-ELI_LILLY_AND_COMPANY-GB201105004599

PATIENT
  Age: 13 Year
  Sex: Male
  Weight: 37.3 kg

DRUGS (1)
  1. STRATTERA [Suspect]
     Indication: ATTENTION DEFICIT/HYPERACTIVITY DISORDER
     Dosage: 40 MG, QD
     Route: 048
     Dates: start: 20100127, end: 20101216

REACTIONS (5)
  - SUICIDAL IDEATION [None]
  - AGGRESSION [None]
  - DEPRESSION [None]
  - THERAPEUTIC RESPONSE DECREASED [None]
  - AGITATION [None]
